FAERS Safety Report 9087923 (Version 1)
Quarter: 2013Q1

REPORT INFORMATION
  Report Type: Spontaneous
  Country: GB (occurrence: GB)
  Receive Date: 20130201
  Receipt Date: 20130201
  Transmission Date: 20140127
  Serious: Yes (Life-Threatening, Other)
  Sender: FDA-Public Use
  Company Number: GB-B.I. PHARMACEUTICALS,INC./RIDGEFIELD-2013-UK-00123UK

PATIENT
  Age: 82 Year
  Sex: Male
  Weight: 64 kg

DRUGS (9)
  1. PRADAXA [Suspect]
     Indication: EMBOLIC CEREBRAL INFARCTION
     Dosage: 220 MG
     Route: 048
     Dates: start: 20130103, end: 20130106
  2. ASPIRIN [Concomitant]
  3. ATENOLOL [Concomitant]
  4. ATORVASTATIN [Concomitant]
  5. AMOXICILLIN\CLAVULANATE POTASSIUM [Concomitant]
  6. FINASTERIDE [Concomitant]
  7. FRUSEMIDE [Concomitant]
  8. LOSARTAN [Concomitant]
  9. OMEPRAZOLE [Concomitant]

REACTIONS (5)
  - Cardiac disorder [Unknown]
  - Cerebral infarction [Unknown]
  - Haematemesis [Recovered/Resolved]
  - Haemoglobin decreased [Unknown]
  - Hypotension [Unknown]
